FAERS Safety Report 4673808-5 (Version None)
Quarter: 2005Q2

REPORT INFORMATION
  Report Type: 
  Country: None (occurrence: None)
  Receive Date: 20050523
  Receipt Date: 20040824
  Transmission Date: 20051028
  Serious: Yes (Other)
  Sender: FDA-Public Use
  Company Number: 10060586-NA01-00

PATIENT
  Age: 20 Year
  Sex: Female

DRUGS (1)
  1. LACTATED RINGER'S [Suspect]
     Dosage: 125 ML Q HR, IV
     Route: 042
     Dates: start: 20040819

REACTIONS (2)
  - PRURITUS [None]
  - URTICARIA [None]
